FAERS Safety Report 9629848 (Version 2)
Quarter: 2014Q1

REPORT INFORMATION
  Report Type: Report from Study
  Country: US (occurrence: US)
  Receive Date: 20131017
  Receipt Date: 20140317
  Transmission Date: 20141002
  Serious: Yes (Hospitalization, Other)
  Sender: FDA-Public Use
  Company Number: US-BRISTOL-MYERS SQUIBB COMPANY-19530013

PATIENT
  Age: 49 Year
  Sex: Male
  Weight: 102.2 kg

DRUGS (2)
  1. IPILIMUMAB [Suspect]
     Indication: MALIGNANT MELANOMA
     Dosage: TOTAL DOSE:1010MG,LAST DOSE:06AUG13
     Route: 042
     Dates: start: 20120911
  2. PREDNISONE [Concomitant]

REACTIONS (2)
  - Palpitations [Recovered/Resolved]
  - Ventricular tachycardia [Recovered/Resolved]
